FAERS Safety Report 8711256 (Version 2)
Quarter: 2012Q4

REPORT INFORMATION
  Report Type: 
  Country: US (occurrence: US)
  Receive Date: 20120807
  Receipt Date: 20120905
  Transmission Date: 20130627
  Serious: Yes (Other)
  Sender: FDA-Public Use
  Company Number: PHEH2012US015166

PATIENT
  Age: 85 None
  Sex: Female

DRUGS (4)
  1. DIOVAN HCT [Suspect]
     Dosage: 1 DF (160/25 mg), QD
  2. ACEBUTOLOL [Concomitant]
     Dosage: 200 mg, UNK
  3. NEXIUM [Concomitant]
     Dosage: UNK UKN, UNK
  4. ASPIRIN [Concomitant]
     Dosage: UNK UKN, UNK

REACTIONS (2)
  - Atrial fibrillation [Unknown]
  - Blood pressure inadequately controlled [Unknown]
